FAERS Safety Report 4649358-9 (Version None)
Quarter: 2005Q2

REPORT INFORMATION
  Report Type: 
  Country: None (occurrence: None)
  Receive Date: 20050429
  Receipt Date: 20050419
  Transmission Date: 20051028
  Serious: Yes (Hospitalization)
  Sender: FDA-Public Use
  Company Number: DE-AMGEN-UK127551

PATIENT
  Sex: Female
  Weight: 90 kg

DRUGS (4)
  1. NEULASTA [Suspect]
     Indication: CHEMOTHERAPY
     Route: 058
     Dates: start: 20050308
  2. EPOETIN BETA [Suspect]
     Route: 065
     Dates: start: 20050223
  3. TAXOL [Concomitant]
     Route: 065
     Dates: start: 20050406
  4. EPIRUBICIN [Concomitant]
     Route: 065
     Dates: start: 20050221, end: 20050321

REACTIONS (1)
  - JUGULAR VEIN THROMBOSIS [None]
